FAERS Safety Report 7248752-X (Version None)
Quarter: 2011Q1

REPORT INFORMATION
  Report Type: 
  Country: None (occurrence: None)
  Receive Date: 20110128
  Receipt Date: 20101216
  Transmission Date: 20110831
  Serious: Yes (Other)
  Sender: FDA-Public Use
  Company Number: US-BAYER-201037685NA

PATIENT
  Sex: Female
  Weight: 88.889 kg

DRUGS (14)
  1. UNCODEABLE ^UNCLASSIFIABLE^ [Concomitant]
  2. OCELLA [Suspect]
     Indication: ACNE
     Dosage: UNK
     Dates: start: 20090427
  3. LOESTRIN 1.5/30 [Concomitant]
  4. VITAMIN B COMPLEX COX [Concomitant]
  5. YAZ [Suspect]
     Indication: POLYCYSTIC OVARIES
  6. YASMIN [Suspect]
     Indication: POLYCYSTIC OVARIES
  7. THYROID TAB [Concomitant]
     Dosage: 0.5 G, UNK
  8. OCELLA [Suspect]
     Indication: POLYCYSTIC OVARIES
  9. METFORMIN HCL [Concomitant]
     Dosage: 500 MG, UNK
  10. ALPHA LIPOIC ACID [Concomitant]
  11. VITAMIN D [Concomitant]
  12. YASMIN [Suspect]
     Indication: ACNE
     Dosage: UNK
     Dates: start: 20090330
  13. JUNEL FE [Concomitant]
     Dosage: UNK
     Dates: start: 20090314
  14. YAZ [Suspect]
     Indication: ACNE

REACTIONS (2)
  - ABDOMINAL PAIN UPPER [None]
  - CHOLELITHIASIS [None]
